FAERS Safety Report 8835831 (Version 1)
Quarter: 2012Q4

REPORT INFORMATION
  Report Type: 
  Country: JP (occurrence: JP)
  Receive Date: 20121011
  Receipt Date: 20121011
  Transmission Date: 20130627
  Serious: Yes (Disabling)
  Sender: FDA-Public Use
  Company Number: JP-GLAXOSMITHKLINE-B0836350A

PATIENT

DRUGS (7)
  1. PAXIL [Suspect]
     Dosage: 10MG Per day
     Route: 064
     Dates: start: 20100727, end: 20100906
  2. PAXIL [Suspect]
     Dosage: 20MG Per day
     Route: 064
     Dates: start: 20100907, end: 20111101
  3. PAXIL [Suspect]
     Dosage: 15MG Per day
     Route: 064
     Dates: start: 20111102, end: 20111110
  4. PAXIL [Suspect]
     Dosage: 10MG Per day
     Route: 064
     Dates: start: 20111111, end: 20111115
  5. PAXIL [Suspect]
     Dosage: 5MG Per day
     Route: 064
     Dates: start: 20111116, end: 20111122
  6. MYSLEE [Concomitant]
     Dosage: 5MG Per day
     Route: 064
     Dates: start: 20081128, end: 20111213
  7. AMOBAN [Concomitant]
     Dosage: 7.5MG Per day
     Route: 064
     Dates: start: 20110831, end: 20111101

REACTIONS (3)
  - Deafness [Unknown]
  - Cleft lip [Not Recovered/Not Resolved]
  - Foetal exposure during pregnancy [Unknown]
